FAERS Safety Report 8312046-1 (Version None)
Quarter: 2012Q2

REPORT INFORMATION
  Report Type: 
  Country: None (occurrence: None)
  Receive Date: 20120425
  Receipt Date: 20120412
  Transmission Date: 20120825
  Serious: Yes (Hospitalization, Other)
  Sender: FDA-Public Use
  Company Number: US-ELI_LILLY_AND_COMPANY-US201101000081

PATIENT
  Age: 47 Year
  Sex: Male

DRUGS (5)
  1. PROLIXIN [Concomitant]
  2. COGENTIN [Concomitant]
  3. ZYPREXA [Suspect]
     Indication: SCHIZOPHRENIA, PARANOID TYPE
     Dosage: UNK, DAILY (1/D)
     Dates: end: 20040101
  4. ZYPREXA [Suspect]
     Dosage: UNK, DAILY (1/D)
  5. ANTIHYPERTENSIVES [Concomitant]
     Indication: HYPERTENSION

REACTIONS (11)
  - CHEST PAIN [None]
  - SALIVARY HYPERSECRETION [None]
  - DRUG WITHDRAWAL SYNDROME [None]
  - MENTAL DISORDER [None]
  - VOMITING [None]
  - INSOMNIA [None]
  - LOSS OF CONSCIOUSNESS [None]
  - CONSTIPATION [None]
  - OVERDOSE [None]
  - HOSPITALISATION [None]
  - DYSPEPSIA [None]
